FAERS Safety Report 8778782 (Version 2)
Quarter: 2012Q4

REPORT INFORMATION
  Report Type: 
  Country: AT (occurrence: AT)
  Receive Date: 20120912
  Receipt Date: 20121010
  Transmission Date: 20130627
  Serious: Yes (Hospitalization)
  Sender: FDA-Public Use
  Company Number: PHHY2012AT078958

PATIENT
  Age: 77 Year
  Sex: Female
  Weight: 60 kg

DRUGS (9)
  1. ACLASTA [Suspect]
     Route: 042
  2. ACLASTA [Interacting]
     Route: 042
  3. ACLASTA [Interacting]
     Dosage: UNK
     Route: 042
     Dates: start: 20120719
  4. ETHANOL [Interacting]
  5. SIMVASTATIN [Concomitant]
     Dosage: 40 mg, daily
     Route: 048
  6. THYREX [Concomitant]
     Dosage: 100 ug, daily
     Route: 048
  7. THEOSPIREX [Concomitant]
     Dosage: 150 mg, daily
     Route: 048
  8. CAL-D-VITA [Concomitant]
     Dosage: 1 DF, daily
     Route: 048
  9. BLOPRESS [Concomitant]
     Route: 048

REACTIONS (5)
  - Coma [Recovered/Resolved]
  - Syncope [Recovered/Resolved]
  - Blood pressure decreased [Recovered/Resolved]
  - Blood alcohol increased [Recovered/Resolved]
  - Drug interaction [Recovered/Resolved]
